FAERS Safety Report 5932027-2 (Version None)
Quarter: 2008Q4

REPORT INFORMATION
  Report Type: 
  Country: None (occurrence: None)
  Receive Date: 20081027
  Receipt Date: 20081023
  Transmission Date: 20090506
  Serious: Yes (Hospitalization)
  Sender: FDA-Public Use
  Company Number: JP-B.I. PHARMACEUTICALS,INC./RIDGEFIELD-2008-BP-14586NB

PATIENT
  Sex: Male
  Weight: 82 kg

DRUGS (3)
  1. SPIRIVA [Suspect]
     Indication: EMPHYSEMA
     Dosage: 18MCG
     Route: 055
     Dates: start: 20060719, end: 20080918
  2. ARICEPT [Suspect]
     Indication: DEMENTIA
     Dosage: 5MG
     Route: 048
     Dates: start: 20080201, end: 20080918
  3. CLEANAL [Concomitant]
     Indication: BRONCHITIS CHRONIC
     Dosage: 1200MG
     Route: 048
     Dates: start: 20060701, end: 20080918

REACTIONS (6)
  - ABDOMINAL DISTENSION [None]
  - BENIGN PROSTATIC HYPERPLASIA [None]
  - DEMENTIA [None]
  - HEAT ILLNESS [None]
  - ILEUS PARALYTIC [None]
  - URINARY RETENTION [None]
